FAERS Safety Report 20390984 (Version 3)
Quarter: 2022Q1

REPORT INFORMATION
  Report Type: Report from Study
  Country: US (occurrence: None)
  Receive Date: 20220128
  Receipt Date: 20220224
  Transmission Date: 20220423
  Serious: Yes (Hospitalization)
  Sender: FDA-Public Use
  Company Number: US-ROCHE-2993992

PATIENT
  Age: 57 Year
  Sex: Female
  Weight: 71.2 kg

DRUGS (14)
  1. ATEZOLIZUMAB [Suspect]
     Active Substance: ATEZOLIZUMAB
     Indication: Uterine leiomyosarcoma
     Dosage: MOST RECENT DOSE PRIOR TO THE EVENTS 15/DEC/2021
     Route: 041
     Dates: start: 20211215, end: 20220117
  2. BETAMETHASONE;NEOMYCIN [Concomitant]
  3. GABAPENTIN [Concomitant]
     Active Substance: GABAPENTIN
  4. INVOKANA [Concomitant]
     Active Substance: CANAGLIFLOZIN
  5. JANUVIA [Concomitant]
     Active Substance: SITAGLIPTIN PHOSPHATE
  6. JARDIANCE [Concomitant]
     Active Substance: EMPAGLIFLOZIN
  7. METFORMIN HYDROCHLORIDE [Concomitant]
     Active Substance: METFORMIN HYDROCHLORIDE
  8. METHOCARBAMOL [Concomitant]
     Active Substance: METHOCARBAMOL
  9. TERCONAZOLE [Concomitant]
     Active Substance: TERCONAZOLE
  10. COVID-19 VACCINE [Concomitant]
  11. ACETAMINOPHEN [Concomitant]
     Active Substance: ACETAMINOPHEN
  12. LIDOCAINE [Concomitant]
     Active Substance: LIDOCAINE
  13. PRILOCAINE [Concomitant]
     Active Substance: PRILOCAINE
  14. AMLODIPINE [Concomitant]
     Active Substance: AMLODIPINE BESYLATE

REACTIONS (6)
  - Diarrhoea [Unknown]
  - Pyrexia [Unknown]
  - Gastritis [Recovered/Resolved]
  - Duodenitis [Recovered/Resolved]
  - Thrombocytopenia [Recovered/Resolved]
  - Sepsis [Recovered/Resolved]

NARRATIVE: CASE EVENT DATE: 20211224
